FAERS Safety Report 19959046 (Version 1)
Quarter: 2021Q4

REPORT INFORMATION
  Report Type: Spontaneous
  Country: US (occurrence: US)
  Receive Date: 20211015
  Receipt Date: 20211015
  Transmission Date: 20220303
  Serious: Yes (Hospitalization)
  Sender: FDA-Public Use
  Company Number: US-SA-SAC20211013000022

PATIENT
  Sex: Female

DRUGS (10)
  1. AUBAGIO [Suspect]
     Active Substance: TERIFLUNOMIDE
     Indication: Multiple sclerosis
     Dosage: 1 DF, QD
     Route: 048
  2. ACYCLOVIR [Concomitant]
     Active Substance: ACYCLOVIR
  3. ATORVASTATIN [Concomitant]
     Active Substance: ATORVASTATIN
  4. BACLOFEN [Concomitant]
     Active Substance: BACLOFEN
  5. GABAPENTIN [Concomitant]
     Active Substance: GABAPENTIN
  6. SERTRALINE [Concomitant]
     Active Substance: SERTRALINE HYDROCHLORIDE
  7. TIZANIDINE [Concomitant]
     Active Substance: TIZANIDINE
  8. TOVIAZ [Concomitant]
     Active Substance: FESOTERODINE FUMARATE
  9. LEVOTHYROXINE [Concomitant]
     Active Substance: LEVOTHYROXINE
  10. NITROFURANTOIN [Concomitant]
     Active Substance: NITROFURANTOIN

REACTIONS (1)
  - Infection [Unknown]
